FAERS Safety Report 20637998 (Version 1)
Quarter: 2022Q1

REPORT INFORMATION
  Report Type: Report from Study
  Country: US (occurrence: US)
  Receive Date: 20220325
  Receipt Date: 20220325
  Transmission Date: 20220423
  Serious: No
  Sender: FDA-Public Use
  Company Number: US-IGSA-BIG0018196

PATIENT
  Sex: Female

DRUGS (6)
  1. GAMUNEX-C [Suspect]
     Active Substance: HUMAN IMMUNOGLOBULIN G
     Indication: Immunodeficiency common variable
     Dosage: UNK UNKNOWN, UNKNOWN
     Route: 065
  2. GAMUNEX-C [Suspect]
     Active Substance: HUMAN IMMUNOGLOBULIN G
     Dosage: UNK UNKNOWN, UNKNOWN
     Route: 065
  3. IBUPROFEN [Concomitant]
     Active Substance: IBUPROFEN
  4. MELATONIN [Concomitant]
     Active Substance: MELATONIN
  5. TYLENOL EXTRA STRENGTH [Concomitant]
     Active Substance: ACETAMINOPHEN
  6. VITAMIN B CO [Concomitant]

REACTIONS (2)
  - Rash [Recovered/Resolved]
  - Skin reaction [Recovered/Resolved]
